FAERS Safety Report 12227034 (Version 1)
Quarter: 2016Q1

REPORT INFORMATION
  Report Type: Spontaneous
  Country: US (occurrence: US)
  Receive Date: 20160331
  Receipt Date: 20160331
  Transmission Date: 20160526
  Serious: No
  Sender: FDA-Public Use
  Company Number: US-GILEAD-2016-0206369

PATIENT
  Age: 76 Year
  Sex: Male

DRUGS (1)
  1. RANEXA [Suspect]
     Active Substance: RANOLAZINE
     Indication: ELECTROCARDIOGRAM ABNORMAL
     Dosage: UNK
     Route: 065
     Dates: start: 201603

REACTIONS (2)
  - Electrocardiogram abnormal [Unknown]
  - Off label use [Unknown]
